FAERS Safety Report 11151153 (Version 1)
Quarter: 2015Q2

REPORT INFORMATION
  Report Type: Spontaneous
  Country: US (occurrence: None)
  Receive Date: 20150529
  Receipt Date: 20150529
  Transmission Date: 20150821
  Serious: No
  Sender: FDA-Public Use
  Company Number: None

PATIENT
  Age: 70 Year
  Sex: Female
  Weight: 67.13 kg

DRUGS (2)
  1. CYCLOBENZAPRINE WATSON LABS [Suspect]
     Active Substance: CYCLOBENZAPRINE
     Route: 048
     Dates: start: 20150321, end: 20150324
  2. METAXALONE COREPHARMA LLC [Suspect]
     Active Substance: METAXALONE
     Indication: MUSCLE SPASMS
     Route: 048
     Dates: start: 20150316, end: 20150320

REACTIONS (4)
  - Mood altered [None]
  - Screaming [None]
  - Hot flush [None]
  - Anger [None]

NARRATIVE: CASE EVENT DATE: 20150320
